FAERS Safety Report 14848592 (Version 2)
Quarter: 2018Q3

REPORT INFORMATION
  Report Type: Spontaneous
  Country: JP (occurrence: JP)
  Receive Date: 20180504
  Receipt Date: 20180927
  Transmission Date: 20181010
  Serious: Yes (Life-Threatening, Hospitalization, Other)
  Sender: FDA-Public Use
  Company Number: JP-ASTRAZENECA-2018SE57275

PATIENT
  Age: 16276 Day
  Sex: Female
  Weight: 51 kg

DRUGS (4)
  1. TENELIA [Concomitant]
     Active Substance: TENELIGLIPTIN
     Route: 048
     Dates: start: 20180406
  2. FORXIGA [Suspect]
     Active Substance: DAPAGLIFLOZIN
     Indication: TYPE 2 DIABETES MELLITUS
     Route: 048
     Dates: start: 20180406, end: 20180409
  3. BASEN [Concomitant]
     Active Substance: VOGLIBOSE
     Dosage: 1.5DF UNKNOWN
     Route: 048
     Dates: start: 20180406
  4. AMLODIPINE [Concomitant]
     Active Substance: AMLODIPINE BESYLATE
     Route: 048

REACTIONS (6)
  - Diabetic ketoacidosis [Recovered/Resolved]
  - Thirst [Recovered/Resolved]
  - Chest pain [Unknown]
  - Abnormal loss of weight [Unknown]
  - Polyuria [Recovered/Resolved]
  - Malaise [Recovered/Resolved]

NARRATIVE: CASE EVENT DATE: 20180408
